FAERS Safety Report 16385357 (Version 1)
Quarter: 2019Q2

REPORT INFORMATION
  Report Type: Spontaneous
  Country: US (occurrence: US)
  Receive Date: 20190426
  Receipt Date: 20190426
  Transmission Date: 20190711
  Serious: Yes (Hospitalization)
  Sender: FDA-Public Use
  Company Number: None

PATIENT
  Sex: Male

DRUGS (5)
  1. MULTIVITAMIN [Concomitant]
     Active Substance: VITAMINS
  2. MILRINONE [Concomitant]
     Active Substance: MILRINONE
  3. MAGNESIUM OXIDE. [Concomitant]
     Active Substance: MAGNESIUM OXIDE
  4. HYDRALAZINE [Concomitant]
     Active Substance: HYDRALAZINE HYDROCHLORIDE
  5. DAPTOMYCIN. [Suspect]
     Active Substance: DAPTOMYCIN
     Indication: STAPHYLOCOCCAL SEPSIS
     Dosage: ?          OTHER FREQUENCY:EVERY 24 HOURS ;?
     Route: 042
     Dates: start: 20190412, end: 20190424

REACTIONS (1)
  - Blood creatine phosphokinase increased [None]
